FAERS Safety Report 21908698 (Version 1)
Quarter: 2023Q1

REPORT INFORMATION
  Report Type: Spontaneous
  Country: US (occurrence: None)
  Receive Date: 20230124
  Receipt Date: 20230124
  Transmission Date: 20230418
  Serious: Yes (Hospitalization)
  Sender: FDA-Public Use
  Company Number: None

PATIENT
  Sex: Male
  Weight: 73.94 kg

DRUGS (15)
  1. ABIRATERONE ACETATE [Suspect]
     Active Substance: ABIRATERONE ACETATE
     Indication: Prostate cancer
     Dosage: FREQUENCY : DAILY;?
     Route: 048
     Dates: start: 20220321
  2. ALPRAZOLAM [Concomitant]
  3. CARVEDILOL [Concomitant]
  4. COMBIGAN [Concomitant]
  5. DICLOFENAC [Concomitant]
  6. ELIQUIS [Concomitant]
  7. FARXIGA [Concomitant]
  8. FENTANYL [Concomitant]
  9. LISINOPRIL [Concomitant]
  10. NITRO-BID [Concomitant]
  11. NITROGLYCERIN [Concomitant]
  12. PREDNISONE [Concomitant]
  13. PYRIDIUM [Concomitant]
  14. TOLTERODINE [Concomitant]
  15. TRAVATAN Z [Concomitant]

REACTIONS (1)
  - Cerebrovascular accident [None]
